FAERS Safety Report 18151432 (Version 1)
Quarter: 2020Q3

REPORT INFORMATION
  Report Type: Report from Study
  Country: US (occurrence: US)
  Receive Date: 20200814
  Receipt Date: 20200814
  Transmission Date: 20201103
  Serious: Yes (Other)
  Sender: FDA-Public Use
  Company Number: US-BAUSCH-BL-2020-022522

PATIENT
  Age: 44 Year
  Sex: Female

DRUGS (1)
  1. SYPRINE [Suspect]
     Active Substance: TRIENTINE HYDROCHLORIDE
     Indication: PRODUCT USED FOR UNKNOWN INDICATION
     Route: 065

REACTIONS (9)
  - Gait disturbance [Not Recovered/Not Resolved]
  - Dyspepsia [Recovering/Resolving]
  - Colitis ulcerative [Unknown]
  - Prothrombin time prolonged [Not Recovered/Not Resolved]
  - Hepatic failure [Unknown]
  - Myopia [Not Recovered/Not Resolved]
  - Illness [Unknown]
  - Platelet count decreased [Not Recovered/Not Resolved]
  - Hot flush [Unknown]

NARRATIVE: CASE EVENT DATE: 2000
